FAERS Safety Report 4896850-8 (Version None)
Quarter: 2005Q4

REPORT INFORMATION
  Report Type: 
  Country: None (occurrence: None)
  Receive Date: 20051228
  Receipt Date: 20051013
  Transmission Date: 20060501
  Serious: Yes (Hospitalization)
  Sender: FDA-Public Use
  Company Number: US0510110766

PATIENT
  Age: 60 Year
  Sex: Female
  Weight: 100 kg

DRUGS (8)
  1. HUMULIN 70/30 [Suspect]
     Indication: DIABETES MELLITUS INADEQUATE CONTROL
     Dates: start: 19970101, end: 20050301
  2. HUMULIN N [Suspect]
     Indication: DIABETES MELLITUS INADEQUATE CONTROL
     Dosage: 50 U DAY
     Dates: start: 20050301
  3. METOPROLOL [Concomitant]
  4. NIFEDIPINE [Concomitant]
  5. ATENOLOL [Concomitant]
  6. LASIX [Concomitant]
  7. AVAPRO [Concomitant]
  8. QUINAPRIL [Concomitant]

REACTIONS (4)
  - BLOOD GLUCOSE DECREASED [None]
  - BLOOD PRESSURE DECREASED [None]
  - BLOOD SODIUM DECREASED [None]
  - FLUID RETENTION [None]
